FAERS Safety Report 16166682 (Version 1)
Quarter: 2019Q2

REPORT INFORMATION
  Report Type: Spontaneous
  Country: FR (occurrence: FR)
  Receive Date: 20190407
  Receipt Date: 20190407
  Transmission Date: 20190711
  Serious: Yes (Other)
  Sender: FDA-Public Use
  Company Number: FR-ACTELION-A-CH2019-188565

PATIENT
  Age: 50 Year
  Sex: Male

DRUGS (1)
  1. VELETRI [Suspect]
     Active Substance: EPOPROSTENOL
     Indication: PRODUCT USED FOR UNKNOWN INDICATION
     Dosage: UNK
     Route: 042
     Dates: end: 20190326

REACTIONS (4)
  - Drug ineffective [Unknown]
  - Investigation abnormal [Unknown]
  - Device related infection [Unknown]
  - Catheter removal [Unknown]

NARRATIVE: CASE EVENT DATE: 20190326
